FAERS Safety Report 5968600-5 (Version None)
Quarter: 2008Q4

REPORT INFORMATION
  Report Type: 
  Country: None (occurrence: None)
  Receive Date: 20081126
  Receipt Date: 20081119
  Transmission Date: 20090506
  Serious: Yes (Hospitalization)
  Sender: FDA-Public Use
  Company Number: CG-MERCK-0811USA03682

PATIENT
  Age: 27 Year
  Sex: Male
  Weight: 61 kg

DRUGS (1)
  1. STROMECTOL [Suspect]
     Indication: ONCHOCERCIASIS
     Route: 048
     Dates: start: 20080719, end: 20080719

REACTIONS (5)
  - ATAXIA [None]
  - COMA [None]
  - GLASGOW COMA SCALE ABNORMAL [None]
  - HYPERREFLEXIA [None]
  - MYDRIASIS [None]
